FAERS Safety Report 10358076 (Version 2)
Quarter: 2014Q3

REPORT INFORMATION
  Report Type: Spontaneous
  Country: US (occurrence: None)
  Receive Date: 20140730
  Receipt Date: 20140814
  Transmission Date: 20150326
  Serious: Yes (Other)
  Sender: FDA-Public Use
  Company Number: UNT-2014-002811

PATIENT
  Age: 66 Year
  Sex: Female
  Weight: 65.8 kg

DRUGS (3)
  1. REMODULIN [Suspect]
     Active Substance: TREPROSTINIL
     Indication: PULMONARY ARTERIAL HYPERTENSION
     Route: 055
     Dates: start: 20130204
  2. WARFARIN (WARFARIN) [Concomitant]
     Active Substance: WARFARIN
  3. LETAIRIS [Concomitant]
     Active Substance: AMBRISENTAN

REACTIONS (3)
  - Heart rate increased [None]
  - Arrhythmia [None]
  - Diarrhoea [None]

NARRATIVE: CASE EVENT DATE: 20140602
